FAERS Safety Report 6496832-9 (Version None)
Quarter: 2009Q4

REPORT INFORMATION
  Report Type: 
  Country: None (occurrence: None)
  Receive Date: 20091125
  Receipt Date: 20090130
  Transmission Date: 20100525
  Serious: Yes (Other)
  Sender: FDA-Public Use
  Company Number: 2009BH001898

PATIENT
  Age: 59 Year
  Sex: Male

DRUGS (13)
  1. DIANEAL [Suspect]
     Indication: PERITONEAL DIALYSIS
     Dosage: 12 L; EVERY DAY; IP
     Route: 033
     Dates: start: 20090120
  2. DIANEAL [Suspect]
     Indication: PERITONEAL DIALYSIS
     Dosage: 10 L; EVERY DAY; IP
     Route: 033
     Dates: start: 20080901, end: 20090120
  3. ADVAIR DISKUS 100/50 [Concomitant]
  4. ALBUTEROL [Concomitant]
  5. ATENOLOL [Concomitant]
  6. COUMADIN [Concomitant]
  7. LACTOBACILLUS [Concomitant]
  8. NEXIUM [Concomitant]
  9. MULTI-VITAMIN [Concomitant]
  10. PAXIL [Concomitant]
  11. PHOSLO [Concomitant]
  12. VASOTEC [Concomitant]
  13. PROVENTIL [Concomitant]

REACTIONS (1)
  - PERITONITIS BACTERIAL [None]
